FAERS Safety Report 15571122 (Version 1)
Quarter: 2018Q4

REPORT INFORMATION
  Report Type: Spontaneous
  Country: US (occurrence: US)
  Receive Date: 20181031
  Receipt Date: 20181031
  Transmission Date: 20190205
  Serious: Yes (Other)
  Sender: FDA-Public Use
  Company Number: US-MALLINCKRODT-T201804021

PATIENT
  Age: 25 Year
  Sex: Male

DRUGS (4)
  1. H.P. ACTHAR [Suspect]
     Active Substance: CORTICOTROPIN
     Indication: SYMPATHETIC OPHTHALMIA
     Dosage: 80 MG, BIW
     Route: 030
     Dates: start: 20170330
  2. H.P. ACTHAR [Suspect]
     Active Substance: CORTICOTROPIN
     Indication: MACULAR DEGENERATION
     Dosage: 80 UNITS, TWICE A DAY
     Route: 030
  3. H.P. ACTHAR [Suspect]
     Active Substance: CORTICOTROPIN
     Dosage: 4 TIMES A WEEK
     Route: 065
  4. H.P. ACTHAR [Suspect]
     Active Substance: CORTICOTROPIN
     Dosage: 80 UNITS, TWICE A WEEK
     Route: 030

REACTIONS (3)
  - Product dose omission [Unknown]
  - Visual impairment [Unknown]
  - Overdose [Unknown]

NARRATIVE: CASE EVENT DATE: 201808
